FAERS Safety Report 11652861 (Version 7)
Quarter: 2016Q1

REPORT INFORMATION
  Report Type: Spontaneous
  Country: BE (occurrence: BE)
  Receive Date: 20151022
  Receipt Date: 20160304
  Transmission Date: 20160525
  Serious: Yes (Hospitalization, Other)
  Sender: FDA-Public Use
  Company Number: BE-ACTELION-A-CH2015-125794

PATIENT
  Age: 23 Year
  Sex: Female
  Weight: 56 kg

DRUGS (6)
  1. SILDENAFIL. [Concomitant]
     Active Substance: SILDENAFIL
     Dosage: 20 MG, TID
     Dates: start: 20140624, end: 201503
  2. ADCIRCA [Suspect]
     Active Substance: TADALAFIL
     Dosage: UNK
     Route: 048
     Dates: start: 201601
  3. SINTROM [Concomitant]
     Active Substance: ACENOCOUMAROL
     Dosage: 1 MG, PRN
     Dates: start: 201511, end: 20151228
  4. OPSUMIT [Suspect]
     Active Substance: MACITENTAN
     Indication: PULMONARY ARTERIAL HYPERTENSION
     Dosage: 10 MG, UNK
     Route: 048
     Dates: start: 20140903, end: 20151013
  5. ADCIRCA [Suspect]
     Active Substance: TADALAFIL
     Indication: PULMONARY ARTERIAL HYPERTENSION
     Dosage: 40 MG, OD
     Route: 048
     Dates: start: 20150302, end: 20151224
  6. SINTROM [Concomitant]
     Active Substance: ACENOCOUMAROL
     Indication: PULMONARY ARTERIAL HYPERTENSION
     Dosage: 1 MG, PRN
     Route: 048
     Dates: start: 20140625, end: 20151031

REACTIONS (20)
  - Biopsy liver abnormal [Unknown]
  - Malignant melanoma in situ [Unknown]
  - Influenza like illness [Not Recovered/Not Resolved]
  - Simplex virus test positive [Unknown]
  - Autoimmune hepatitis [Not Recovered/Not Resolved]
  - Alanine aminotransferase increased [Not Recovered/Not Resolved]
  - Gamma-glutamyltransferase increased [Not Recovered/Not Resolved]
  - Skin neoplasm excision [Unknown]
  - Cholestasis [Unknown]
  - Coma hepatic [Unknown]
  - Hepatic cirrhosis [Unknown]
  - Blood bilirubin increased [Not Recovered/Not Resolved]
  - Asthenia [Not Recovered/Not Resolved]
  - Jaundice [Unknown]
  - Vomiting [Unknown]
  - Hepatic failure [Unknown]
  - Aspartate aminotransferase increased [Not Recovered/Not Resolved]
  - Hepatic encephalopathy [Unknown]
  - Liver transplant [Unknown]
  - Chronic hepatitis [Unknown]

NARRATIVE: CASE EVENT DATE: 20151006
